FAERS Safety Report 24171473 (Version 1)
Quarter: 2024Q3

REPORT INFORMATION
  Report Type: Spontaneous
  Country: CN (occurrence: CN)
  Receive Date: 20240805
  Receipt Date: 20240805
  Transmission Date: 20241016
  Serious: Yes (Other)
  Sender: BAXTER
  Company Number: None

PATIENT
  Age: 57 Year
  Sex: Female
  Weight: 55 kg

DRUGS (4)
  1. CYCLOPHOSPHAMIDE [Suspect]
     Active Substance: CYCLOPHOSPHAMIDE
     Indication: Breast cancer female
     Dosage: 0.5 G, ONE TIME IN ONE DAY, DILUTED WITH 0.9% SODIUM CHLORIDE 50 ML, D1
     Route: 041
     Dates: start: 20240625, end: 20240625
  2. SODIUM CHLORIDE [Suspect]
     Active Substance: SODIUM CHLORIDE
     Indication: Medication dilution
     Dosage: (0.9%) 50 ML, ONE TIME IN ONE DAY, INJECTION, USED TO DILUTE CYCLOPHOSPHAMIDE 0.5 G, D1
     Route: 041
     Dates: start: 20240625, end: 20240625
  3. DEXTROSE [Suspect]
     Active Substance: DEXTROSE\DEXTROSE MONOHYDRATE
     Indication: Medication dilution
     Dosage: (5%) 500 ML, ONE TIME IN ONE DAY, INJECTION, USED TO DILUTE LIPOSOMAL DOXORUBICIN HYDROCHLORIDE 35 M
     Route: 041
     Dates: start: 20240625, end: 20240625
  4. DOXORUBICIN HYDROCHLORIDE [Suspect]
     Active Substance: DOXORUBICIN HYDROCHLORIDE
     Indication: Breast cancer female
     Dosage: 35 MG, ONE TIME IN ONE DAY, DILUTED WITH 5% GLUCOSE 500 ML, PREPARED BY SELF
     Route: 041
     Dates: start: 20240625, end: 20240625

REACTIONS (1)
  - Leukopenia [Recovered/Resolved]

NARRATIVE: CASE EVENT DATE: 20240629
